FAERS Safety Report 24891175 (Version 1)
Quarter: 2025Q1

REPORT INFORMATION
  Report Type: Report from Study
  Country: US (occurrence: US)
  Receive Date: 20250127
  Receipt Date: 20250127
  Transmission Date: 20250408
  Serious: Yes (Hospitalization)
  Sender: PFIZER
  Company Number: US-PFIZER INC-PV202500009774

PATIENT
  Age: 58 Year
  Sex: Male

DRUGS (2)
  1. MEKTOVI [Suspect]
     Active Substance: BINIMETINIB
     Indication: Malignant melanoma
     Dosage: 45 MG (3 TABLETS OF 15 MG), 2X/DAY
     Route: 048
  2. BRAFTOVI [Suspect]
     Active Substance: ENCORAFENIB
     Indication: Malignant melanoma
     Dosage: 450 MG (6 CAPSULES OF 75 MG), 1X/DAY
     Route: 048

REACTIONS (5)
  - Skin infection [Unknown]
  - Rash pruritic [Unknown]
  - Insomnia [Unknown]
  - Scratch [Unknown]
  - Skin haemorrhage [Unknown]
